FAERS Safety Report 4831398-8 (Version None)
Quarter: 2005Q4

REPORT INFORMATION
  Report Type: 
  Country: None (occurrence: None)
  Receive Date: 20051118
  Receipt Date: 20051115
  Transmission Date: 20060501
  Serious: Yes (Other)
  Sender: FDA-Public Use
  Company Number: PHBS2005GB16086

PATIENT
  Age: 56 Year
  Sex: Female

DRUGS (8)
  1. ABACAVIR SULFATE [Suspect]
     Dosage: 300MG TWICE PER DAY
     Route: 065
  2. RITONAVIR [Suspect]
     Dosage: 3UNIT TWICE PER DAY
     Route: 065
  3. TRIMETHOPRIM [Suspect]
     Route: 065
  4. VIREAD [Suspect]
     Route: 065
  5. DICLOFENAC [Suspect]
     Indication: BACK PAIN
     Dosage: 300MG PER DAY
     Route: 065
  6. LOPINAVIR [Suspect]
     Dosage: 3UNIT TWICE PER DAY
     Route: 065
  7. SULFAMETHOXAZOLE [Suspect]
     Route: 065
  8. ATENOLOL [Concomitant]
     Indication: HYPERTENSION
     Route: 065

REACTIONS (12)
  - ARTHRALGIA [None]
  - BACK PAIN [None]
  - BLOOD ALKALINE PHOSPHATASE INCREASED [None]
  - BLOOD BICARBONATE ABNORMAL [None]
  - BLOOD CREATINE INCREASED [None]
  - BLOOD PHOSPHORUS DECREASED [None]
  - JOINT SWELLING [None]
  - MUSCULAR WEAKNESS [None]
  - MYOPATHY [None]
  - OLIGURIA [None]
  - PROTEINURIA [None]
  - RENAL IMPAIRMENT [None]
